FAERS Safety Report 9790771 (Version 4)
Quarter: 2014Q1

REPORT INFORMATION
  Report Type: Spontaneous
  Country: US (occurrence: US)
  Receive Date: 20131231
  Receipt Date: 20140217
  Transmission Date: 20141002
  Serious: Yes (Other)
  Sender: FDA-Public Use
  Company Number: PHEH2013US026596

PATIENT
  Sex: Male

DRUGS (3)
  1. AREDIA [Suspect]
     Route: 042
     Dates: start: 199912, end: 200203
  2. ZOMETA [Suspect]
     Indication: PLASMA CELL MYELOMA
     Dosage: 4 MG, QMO
     Route: 042
     Dates: start: 2000, end: 20040803
  3. ZOMETA [Suspect]
     Indication: HYPERCALCAEMIA

REACTIONS (16)
  - Metabolic encephalopathy [Unknown]
  - Osteonecrosis [Unknown]
  - Gastrointestinal haemorrhage [Unknown]
  - Right atrial dilatation [Unknown]
  - Aortic valve incompetence [Unknown]
  - Intracardiac mass [Unknown]
  - Pulmonary valve incompetence [Unknown]
  - Rhonchi [Unknown]
  - Middle ear effusion [Unknown]
  - Cerebral ischaemia [Unknown]
  - Aortic disorder [Unknown]
  - Ascites [Unknown]
  - Generalised oedema [Unknown]
  - Pleural effusion [Unknown]
  - Tricuspid valve stenosis [Unknown]
  - Bone pain [Unknown]
